FAERS Safety Report 8062943-X (Version None)
Quarter: 2012Q1

REPORT INFORMATION
  Report Type: 
  Country: None (occurrence: None)
  Receive Date: 20120123
  Receipt Date: 20120123
  Transmission Date: 20120608
  Serious: No
  Sender: FDA-Public Use
  Company Number: None

PATIENT
  Age: 48 Year
  Sex: Male
  Weight: 74.842 kg

DRUGS (1)
  1. DAYQUIL NYQUIL COLD+FLU LIQUICAP [Suspect]
     Indication: OROPHARYNGEAL PAIN
     Dosage: TWO LIQUICAPS
     Route: 048
     Dates: start: 20120120, end: 20120122

REACTIONS (8)
  - DYSPNOEA [None]
  - PILOERECTION [None]
  - RASH [None]
  - INSOMNIA [None]
  - HOT FLUSH [None]
  - DIZZINESS [None]
  - HYPERHIDROSIS [None]
  - PRURITUS [None]
